FAERS Safety Report 5007961-0 (Version None)
Quarter: 2006Q2

REPORT INFORMATION
  Report Type: 
  Country: None (occurrence: None)
  Receive Date: 20060518
  Receipt Date: 20060501
  Transmission Date: 20061013
  Serious: Yes (Other)
  Sender: FDA-Public Use
  Company Number: CO-2006-011276

PATIENT
  Age: 30 Year
  Sex: Female
  Weight: 50 kg

DRUGS (1)
  1. MIRENA [Suspect]
     Indication: CONTRACEPTION
     Dosage: 20 UG/DAY, CONT, INTRA-UTERINE
     Route: 015
     Dates: start: 20041101

REACTIONS (6)
  - ABDOMINAL PAIN [None]
  - ACNE CYSTIC [None]
  - COMPLICATION OF DEVICE REMOVAL [None]
  - IUD MIGRATION [None]
  - MENSTRUATION IRREGULAR [None]
  - METRORRHAGIA [None]
